FAERS Safety Report 9631425 (Version 1)
Quarter: 2013Q4

REPORT INFORMATION
  Report Type: Spontaneous
  Country: DE (occurrence: None)
  Receive Date: 20131015
  Receipt Date: 20131015
  Transmission Date: 20140711
  Serious: Yes (Other)
  Sender: FDA-Public Use
  Company Number: AUR-APL-2013-08306

PATIENT
  Sex: Female

DRUGS (1)
  1. ALENDRONIC ACID [Suspect]

REACTIONS (1)
  - Hearing impaired [None]
